FAERS Safety Report 7817037-2 (Version None)
Quarter: 2011Q4

REPORT INFORMATION
  Report Type: 
  Country: None (occurrence: None)
  Receive Date: 20111014
  Receipt Date: 20111014
  Transmission Date: 20120403
  Serious: Yes (Other)
  Sender: FDA-Public Use
  Company Number: None

PATIENT
  Sex: Female
  Weight: 90.7194 kg

DRUGS (1)
  1. FASLODEX [Suspect]

REACTIONS (6)
  - INJECTION SITE ERYTHEMA [None]
  - SPUTUM DISCOLOURED [None]
  - NASAL CONGESTION [None]
  - CHOKING [None]
  - COUGH [None]
  - MALAISE [None]
